FAERS Safety Report 25408846 (Version 1)
Quarter: 2025Q2

REPORT INFORMATION
  Report Type: Spontaneous
  Country: FR (occurrence: FR)
  Receive Date: 20250607
  Receipt Date: 20250607
  Transmission Date: 20250717
  Serious: Yes (Hospitalization)
  Sender: ACCORD
  Company Number: None

PATIENT
  Age: 52 Year
  Sex: Male
  Weight: 80 kg

DRUGS (8)
  1. OXALIPLATIN [Suspect]
     Active Substance: OXALIPLATIN
     Indication: Ductal adenocarcinoma of pancreas
     Dates: start: 20250418, end: 20250418
  2. IRINOTECAN [Suspect]
     Active Substance: IRINOTECAN
     Indication: Ductal adenocarcinoma of pancreas
     Dosage: STRENGTH: 1.5 MG/ML
     Dates: start: 20250418, end: 20250418
  3. FLUOROURACIL [Suspect]
     Active Substance: FLUOROURACIL
     Indication: Ductal adenocarcinoma of pancreas
     Dates: start: 20250418, end: 20250420
  4. LEUCOVORIN [Concomitant]
     Active Substance: LEUCOVORIN\LEUCOVORIN CALCIUM
     Indication: Ductal adenocarcinoma of pancreas
     Dates: start: 20250418, end: 20250418
  5. ELIQUIS [Concomitant]
     Active Substance: APIXABAN
  6. PANTOPRAZOLE [Concomitant]
     Active Substance: PANTOPRAZOLE
  7. INSULIN NOS [Concomitant]
     Active Substance: INSULIN NOS
  8. CREON [Concomitant]
     Active Substance: PANCRELIPASE AMYLASE\PANCRELIPASE LIPASE\PANCRELIPASE PROTEASE

REACTIONS (1)
  - Pancytopenia [Recovering/Resolving]

NARRATIVE: CASE EVENT DATE: 20250424
